FAERS Safety Report 5219042-1 (Version None)
Quarter: 2007Q1

REPORT INFORMATION
  Report Type: 
  Country: None (occurrence: None)
  Receive Date: 20070124
  Receipt Date: 20070124
  Transmission Date: 20070707
  Serious: No
  Sender: FDA-Public Use
  Company Number: None

PATIENT
  Sex: Female
  Weight: 56.6996 kg

DRUGS (1)
  1. AVONEX [Suspect]
     Indication: MULTIPLE SCLEROSIS
     Dosage: 30 MCG WEEKLY IM
     Route: 030

REACTIONS (3)
  - INJECTION SITE REACTION [None]
  - MADAROSIS [None]
  - PAIN IN EXTREMITY [None]
